FAERS Safety Report 5447661-6 (Version None)
Quarter: 2007Q3

REPORT INFORMATION
  Report Type: 
  Country: None (occurrence: None)
  Receive Date: 20070907
  Receipt Date: 20070907
  Transmission Date: 20080115
  Serious: Yes (Hospitalization)
  Sender: FDA-Public Use
  Company Number: None

PATIENT
  Sex: Male
  Weight: 89.8122 kg

DRUGS (6)
  1. ARIMIDEX [Suspect]
     Dosage: 10.0 MG DAILY P.O.
     Route: 048
     Dates: start: 20070801, end: 20070823
  2. ANDROGEL [Suspect]
     Dosage: 7.5G DAILY T.D.
     Route: 062
     Dates: start: 20070801, end: 20070823
  3. ZOLADEX [Suspect]
     Dosage: 10.8 MG SINGLE INJECTION IM
     Route: 030
     Dates: start: 20070801, end: 20070801
  4. HYDROCHLOROTHIAZIDE [Concomitant]
  5. NORVASC [Concomitant]
  6. LEVOXYL [Concomitant]

REACTIONS (4)
  - ATRIAL FIBRILLATION [None]
  - ATRIAL FLUTTER [None]
  - ATRIOVENTRICULAR BLOCK SECOND DEGREE [None]
  - TACHYCARDIA [None]
